FAERS Safety Report 9788701 (Version 2)
Quarter: 2014Q1

REPORT INFORMATION
  Report Type: Spontaneous
  Country: DK (occurrence: JP)
  Receive Date: 20131230
  Receipt Date: 20140305
  Transmission Date: 20141002
  Serious: Yes (Hospitalization)
  Sender: FDA-Public Use
  Company Number: JP-FRI-1000052524

PATIENT
  Age: 77 Year
  Sex: Female

DRUGS (1)
  1. LEXAPRO [Suspect]
     Route: 048
     Dates: end: 20131214

REACTIONS (1)
  - Convulsion [Recovering/Resolving]
